FAERS Safety Report 8822067 (Version 1)
Quarter: 2012Q4

REPORT INFORMATION
  Report Type: 
  Country: AU (occurrence: AU)
  Receive Date: 20121003
  Receipt Date: 20121003
  Transmission Date: 20130627
  Serious: Yes (Other)
  Sender: FDA-Public Use
  Company Number: AU-AMGEN-AUSSP2012036731

PATIENT
  Age: 50 Year
  Sex: Female
  Weight: 72 kg

DRUGS (1)
  1. ENBREL [Suspect]
     Indication: PSORIATIC ARTHROPATHY
     Dosage: 50 mg, qwk
     Dates: start: 20120515

REACTIONS (5)
  - Drug dose omission [Recovered/Resolved]
  - Device leakage [Unknown]
  - Device colour issue [Unknown]
  - Swelling [Recovered/Resolved]
  - Inappropriate schedule of drug administration [Recovered/Resolved]
